FAERS Safety Report 5360207-6 (Version None)
Quarter: 2007Q2

REPORT INFORMATION
  Report Type: 
  Country: None (occurrence: None)
  Receive Date: 20070618
  Receipt Date: 20070614
  Transmission Date: 20071010
  Serious: Yes (Death, Hospitalization)
  Sender: FDA-Public Use
  Company Number: PHNU2007DE02103

PATIENT
  Age: 71 Year
  Sex: Male
  Weight: 79 kg

DRUGS (7)
  1. DIOVAN [Suspect]
     Indication: ESSENTIAL HYPERTENSION
     Dosage: 160 MG, QD
     Route: 048
     Dates: start: 20061012
  2. TORSEMIDE [Concomitant]
     Indication: LEFT VENTRICULAR FAILURE
     Dosage: 10 MG, QD
     Dates: start: 20061012
  3. BISOPROLOL FUMARATE [Concomitant]
     Indication: CORONARY ARTERY DISEASE
     Dosage: 5 MG, BID
     Route: 048
     Dates: start: 20040405
  4. INEGY [Concomitant]
     Indication: HYPERLIPIDAEMIA
     Dosage: 10/10 MG, QD
     Route: 048
     Dates: start: 20040405
  5. ACETYLSALICYLIC ACID SRT [Concomitant]
     Indication: CORONARY ARTERY DISEASE
     Dosage: 100 MG, QD
     Route: 048
     Dates: start: 20040405
  6. CO-DIOVAN [Suspect]
     Indication: ESSENTIAL HYPERTENSION
     Dosage: 160/12.5 MG, QD
     Route: 048
     Dates: start: 20061012
  7. TORSEMIDE [Concomitant]
     Dosage: 10 MG/DAY
     Route: 048

REACTIONS (1)
  - MYOCARDIAL INFARCTION [None]
